FAERS Safety Report 7798115-3 (Version None)
Quarter: 2011Q4

REPORT INFORMATION
  Report Type: 
  Country: None (occurrence: None)
  Receive Date: 20111004
  Receipt Date: 20110922
  Transmission Date: 20120403
  Serious: Yes (Other)
  Sender: FDA-Public Use
  Company Number: 1000023779

PATIENT
  Age: 43 Year
  Sex: Female

DRUGS (1)
  1. ESCITALOPRAM OXALATE [Suspect]
     Indication: PANIC ATTACK
     Dosage: 20 MG (20 MG, 1 IN 1 D); 30 MG (30 MG, 1 IN 1 D)

REACTIONS (3)
  - OVERDOSE [None]
  - PANIC ATTACK [None]
  - DRUG INEFFECTIVE [None]
